FAERS Safety Report 8294426-6 (Version None)
Quarter: 2012Q2

REPORT INFORMATION
  Report Type: 
  Country: None (occurrence: None)
  Receive Date: 20120418
  Receipt Date: 20120410
  Transmission Date: 20120825
  Serious: Yes (Other)
  Sender: FDA-Public Use
  Company Number: PHHY2012BR031618

PATIENT
  Sex: Female

DRUGS (12)
  1. PRESSAT [Concomitant]
     Indication: HYPERTENSION
     Dosage: 0.5 DF, UNK
     Dates: start: 20120310
  2. HYDERGINE [Concomitant]
     Indication: LABYRINTHITIS
     Dosage: 15 DRP, AT NIGHT
  3. OSTEOFORM [Concomitant]
     Indication: OSTEOPOROSIS
     Dosage: 1 DF, ONE TABLET A WEEK
  4. DIOVAN HCT [Suspect]
     Indication: HYPERTENSION
     Dosage: 1 DF X (160/12.5 MG), DAILY
  5. SYNTHROID [Concomitant]
     Indication: HYPOTHYROIDISM
     Dosage: 75 MG, ONE TABLET A DAY
  6. DEPURA [Concomitant]
     Indication: VITAMIN D ABNORMAL
     Dosage: 15 DRP, A DAY
  7. CALTRATE +D [Concomitant]
     Indication: BLOOD CALCIUM ABNORMAL
     Dosage: 1 DF, A DAY
  8. PRESSAT [Concomitant]
     Dosage: 1 DF X (5 MG), UNK
  9. OMEPRAZOLE [Concomitant]
     Indication: GASTRIC DISORDER
     Dosage: 1 DF, A DAY
  10. SIMVASTATIN [Concomitant]
     Indication: BLOOD CHOLESTEROL ABNORMAL
     Dosage: 20 MG, ONE TABLET DAILY
  11. FENOFIBRATE [Concomitant]
     Indication: BLOOD TRIGLYCERIDES ABNORMAL
     Dosage: 200 MG, ONE TABLET EVERY OTHER DAY
  12. OCUPRESS [Concomitant]
     Indication: GLAUCOMA
     Dosage: ONE DRP, IN EACH EYE TWICE A DAY

REACTIONS (4)
  - BLOOD PRESSURE INCREASED [None]
  - HEADACHE [None]
  - DYSPNOEA [None]
  - HEARING IMPAIRED [None]
